FAERS Safety Report 7249736-8 (Version None)
Quarter: 2011Q1

REPORT INFORMATION
  Report Type: 
  Country: None (occurrence: None)
  Receive Date: 20110128
  Receipt Date: 20110117
  Transmission Date: 20110831
  Serious: Yes (Other)
  Sender: FDA-Public Use
  Company Number: US-SANOFI-AVENTIS-2011SA003860

PATIENT
  Age: 80 Year
  Sex: Female

DRUGS (3)
  1. METOPROLOL [Concomitant]
     Dosage: 50/50
  2. METOPROLOL [Concomitant]
  3. MULTAQ [Suspect]
     Indication: ATRIAL FIBRILLATION
     Route: 048
     Dates: start: 20101101

REACTIONS (1)
  - ATRIAL FIBRILLATION [None]
